FAERS Safety Report 10248879 (Version 1)
Quarter: 2014Q2

REPORT INFORMATION
  Report Type: Spontaneous
  Country: IT (occurrence: IT)
  Receive Date: 20140620
  Receipt Date: 20140620
  Transmission Date: 20141212
  Serious: Yes (Other)
  Sender: FDA-Public Use
  Company Number: IT-JNJFOC-20140604823

PATIENT
  Age: 37 Year
  Sex: Female

DRUGS (2)
  1. INVEGA [Suspect]
     Indication: SUICIDE ATTEMPT
     Route: 048
     Dates: start: 20140407, end: 20140407
  2. TAVOR [Suspect]
     Indication: SUICIDE ATTEMPT
     Route: 048
     Dates: start: 20140407, end: 20140407

REACTIONS (3)
  - Suicide attempt [Recovered/Resolved]
  - Sluggishness [Recovered/Resolved]
  - Toxicity to various agents [Recovered/Resolved]
